FAERS Safety Report 5643005-5 (Version None)
Quarter: 2008Q1

REPORT INFORMATION
  Report Type: 
  Country: None (occurrence: None)
  Receive Date: 20080216
  Receipt Date: 20080219
  Transmission Date: 20080703
  Serious: Yes (Other)
  Sender: FDA-Public Use
  Company Number: 2007SP021760

PATIENT
  Age: 55 Year
  Sex: Male
  Weight: 70.3075 kg

DRUGS (1)
  1. CLARITIN [Suspect]
     Dosage: ; PO
     Route: 048
     Dates: start: 20071118, end: 20071118

REACTIONS (2)
  - MICTURITION URGENCY [None]
  - URINARY RETENTION [None]
